FAERS Safety Report 7152357-9 (Version None)
Quarter: 2010Q4

REPORT INFORMATION
  Report Type: 
  Country: None (occurrence: None)
  Receive Date: 20101123
  Receipt Date: 20101109
  Transmission Date: 20110411
  Serious: Yes (Hospitalization)
  Sender: FDA-Public Use
  Company Number: 2010-3945

PATIENT
  Sex: Female

DRUGS (4)
  1. APO-GO AMPOULES (APO-GO) (APOMORPHINE HYDROCHLORIDE( (APOMORPHINE HYDR [Suspect]
     Indication: PARKINSON'S DISEASE
     Dosage: 6 MG, SUBCUTANEOUS
     Route: 058
     Dates: start: 20060101
  2. APO-GO PEN (APO-GO) (APOMORPHINE HYDROCHLORIDE) (APOMORPHINE HYDROCHLO [Suspect]
     Indication: PARKINSON'S DISEASE
     Dosage: 6 MG
  3. ROPINIROLE [Concomitant]
  4. CO-CODAMOL (PANADEINE CO) [Concomitant]

REACTIONS (3)
  - CONDITION AGGRAVATED [None]
  - DYSKINESIA [None]
  - LYMPHOMA [None]
